FAERS Safety Report 10857530 (Version 1)
Quarter: 2015Q1

REPORT INFORMATION
  Report Type: Spontaneous
  Country: US (occurrence: US)
  Receive Date: 20150223
  Receipt Date: 20150223
  Transmission Date: 20150721
  Serious: No
  Sender: FDA-Public Use
  Company Number: US-ENDO PHARMACEUTICALS INC.-HCDA20140069

PATIENT
  Sex: Female

DRUGS (2)
  1. HYDROCODONE BITARTRATE/APAP TABLETS 10MG/300MG [Suspect]
     Active Substance: ACETAMINOPHEN\HYDROCODONE BITARTRATE
     Dosage: 30/300 MG
     Route: 048
     Dates: start: 201402, end: 2014
  2. HYDROCODONE BITARTRATE/APAP TABLETS 10MG/300MG [Suspect]
     Active Substance: ACETAMINOPHEN\HYDROCODONE BITARTRATE
     Indication: BACK PAIN
     Dosage: 30/300 MG
     Route: 048
     Dates: start: 20140407, end: 201404

REACTIONS (2)
  - Withdrawal syndrome [Unknown]
  - Drug tolerance [Unknown]

NARRATIVE: CASE EVENT DATE: 201404
